FAERS Safety Report 17422590 (Version 1)
Quarter: 2020Q1

REPORT INFORMATION
  Report Type: Spontaneous
  Country: US (occurrence: US)
  Receive Date: 20200215
  Receipt Date: 20200215
  Transmission Date: 20200409
  Serious: No
  Sender: FDA-Public Use
  Company Number: US-B.I. PHARMACEUTICALS,INC./RIDGEFIELD-2020-US-007770

PATIENT
  Sex: Male

DRUGS (1)
  1. JARDIANCE [Suspect]
     Active Substance: EMPAGLIFLOZIN
     Indication: PRODUCT USED FOR UNKNOWN INDICATION
     Dosage: 25 MG AS DIRECTED
     Route: 065
     Dates: start: 202001, end: 202001

REACTIONS (2)
  - Scrotal ulcer [Unknown]
  - Scrotal swelling [Unknown]

NARRATIVE: CASE EVENT DATE: 202001
